FAERS Safety Report 7545065-3 (Version None)
Quarter: 2011Q2

REPORT INFORMATION
  Report Type: 
  Country: None (occurrence: None)
  Receive Date: 20110610
  Receipt Date: 20110610
  Transmission Date: 20111010
  Serious: No
  Sender: FDA-Public Use
  Company Number: None

PATIENT
  Age: 73 Year
  Sex: Female
  Weight: 46.7205 kg

DRUGS (1)
  1. RECLAST [Suspect]
     Indication: OSTEOPOROSIS
     Dosage: ONE
     Dates: start: 20101101

REACTIONS (4)
  - TOOTHACHE [None]
  - DECREASED APPETITE [None]
  - ARTHRALGIA [None]
  - HEADACHE [None]
